FAERS Safety Report 5345871-X (Version None)
Quarter: 2007Q2

REPORT INFORMATION
  Report Type: 
  Country: None (occurrence: None)
  Receive Date: 20070430
  Receipt Date: 20070302
  Transmission Date: 20071010
  Serious: No
  Sender: FDA-Public Use
  Company Number: 261467

PATIENT
  Age: 72 Year
  Sex: Male

DRUGS (2)
  1. LEVEMIR [Suspect]
     Indication: DIABETES MELLITUS INSULIN-DEPENDENT
     Dosage: 18 IU, QD, SUBCUTANEOUS
     Route: 058
     Dates: end: 20070228
  2. SYNTHROID [Concomitant]

REACTIONS (1)
  - BLOOD GLUCOSE FLUCTUATION [None]
